FAERS Safety Report 18025448 (Version 2)
Quarter: 2020Q3

REPORT INFORMATION
  Report Type: Spontaneous
  Country: US (occurrence: US)
  Receive Date: 20200715
  Receipt Date: 20200904
  Transmission Date: 20201103
  Serious: No
  Sender: FDA-Public Use
  Company Number: US-SA-2020SA181040

PATIENT

DRUGS (2)
  1. DUPIXENT [Suspect]
     Active Substance: DUPILUMAB
     Indication: DERMATITIS ATOPIC
     Dosage: 600 MG, 1X
     Route: 058
     Dates: start: 20200706, end: 20200706
  2. DUPIXENT [Suspect]
     Active Substance: DUPILUMAB
     Indication: ANGINA PECTORIS
     Dosage: 300 MG, QOW
     Route: 058
     Dates: start: 202007

REACTIONS (3)
  - White blood cell count increased [Unknown]
  - Product use in unapproved indication [Unknown]
  - Blepharospasm [Recovering/Resolving]

NARRATIVE: CASE EVENT DATE: 202007
